FAERS Safety Report 5705853-2 (Version None)
Quarter: 2008Q2

REPORT INFORMATION
  Report Type: 
  Country: None (occurrence: None)
  Receive Date: 20080414
  Receipt Date: 20080414
  Transmission Date: 20081010
  Serious: No
  Sender: FDA-Public Use
  Company Number: None

PATIENT
  Age: 12 Year
  Sex: Male

DRUGS (3)
  1. XANAX [Suspect]
     Dosage: CAPSULE
  2. TENEX [Suspect]
     Dosage: CAPSULE
  3. WELLBUTRIN [Suspect]
     Dosage: TABLET

REACTIONS (26)
  - ABDOMINAL DISCOMFORT [None]
  - ABDOMINAL PAIN UPPER [None]
  - CHILLS [None]
  - CRYING [None]
  - DIARRHOEA [None]
  - DISTURBANCE IN ATTENTION [None]
  - DIZZINESS [None]
  - DRUG DISPENSING ERROR [None]
  - DRUG WITHDRAWAL SYNDROME [None]
  - EMOTIONAL DISORDER [None]
  - FATIGUE [None]
  - INCORRECT DOSE ADMINISTERED [None]
  - INSOMNIA [None]
  - IRRITABILITY [None]
  - MEDICATION ERROR [None]
  - MUSCLE TWITCHING [None]
  - NAUSEA [None]
  - NERVOUSNESS [None]
  - OVERDOSE [None]
  - PAIN [None]
  - POLLAKIURIA [None]
  - SOCIAL AVOIDANT BEHAVIOUR [None]
  - TENSION [None]
  - TREMOR [None]
  - VOMITING [None]
  - WRONG DRUG ADMINISTERED [None]
